FAERS Safety Report 8951205 (Version 1)
Quarter: 2012Q4

REPORT INFORMATION
  Report Type: Spontaneous
  Country: US (occurrence: None)
  Receive Date: 20121129
  Receipt Date: 20121129
  Transmission Date: 20130627
  Serious: Yes (Other)
  Sender: FDA-Public Use
  Company Number: 20120719

PATIENT
  Age: 12 Year
  Sex: Female

DRUGS (8)
  1. DEXAMETHASONE SODIUM PHOSPHATE [Suspect]
  2. CYCLOPHOSPHAMIDE [Suspect]
  3. DAUNORUBICIN [Suspect]
  4. CYTARABINE [Suspect]
  5. MERCAPTOPURINE [Suspect]
  6. PEGASPARGASE [Suspect]
  7. TIOGUANINE [Suspect]
  8. VINCRISTINE [Suspect]

REACTIONS (1)
  - Osteonecrosis [None]
